FAERS Safety Report 4393828-8 (Version None)
Quarter: 2004Q3

REPORT INFORMATION
  Report Type: 
  Country: None (occurrence: None)
  Receive Date: 20040707
  Receipt Date: 20040623
  Transmission Date: 20050211
  Serious: Yes (Life-Threatening, Hospitalization)
  Sender: FDA-Public Use
  Company Number: 02100-JPN-04-0153

PATIENT
  Age: 56 Year
  Sex: Male

DRUGS (4)
  1. CILOSTAZOL [Suspect]
     Indication: CEREBRAL INFARCTION
     Dosage: 200 MG ORAL
     Route: 048
     Dates: start: 20021212, end: 20040413
  2. CANDESARTAN CILEXETIL [Concomitant]
  3. NILVADIPINE [Concomitant]
  4. NICERGOLINE [Concomitant]

REACTIONS (1)
  - CEREBELLAR HAEMORRHAGE [None]
